FAERS Safety Report 6170136-6 (Version None)
Quarter: 2009Q2

REPORT INFORMATION
  Report Type: 
  Country: None (occurrence: None)
  Receive Date: 20090428
  Receipt Date: 20090423
  Transmission Date: 20091009
  Serious: Yes (Other)
  Sender: FDA-Public Use
  Company Number: A0778905A

PATIENT
  Age: 80 Year
  Sex: Male

DRUGS (1)
  1. CITRUCEL REGULAR SUSPENSION [Suspect]
     Route: 048

REACTIONS (7)
  - ASTHENIA [None]
  - CONSTIPATION [None]
  - DELIRIUM [None]
  - DIARRHOEA [None]
  - FLATULENCE [None]
  - GASTROINTESTINAL PAIN [None]
  - MALAISE [None]
